FAERS Safety Report 9751466 (Version 1)
Quarter: 2013Q4

REPORT INFORMATION
  Report Type: Spontaneous
  Country: US (occurrence: US)
  Receive Date: 20131212
  Receipt Date: 20131212
  Transmission Date: 20140711
  Serious: Yes (Other)
  Sender: FDA-Public Use
  Company Number: CHPA2013US018303

PATIENT
  Sex: Female

DRUGS (1)
  1. TRIAMINIC UNKNOWN FORMULA [Suspect]
     Route: 048

REACTIONS (1)
  - Convulsion [Unknown]
